FAERS Safety Report 8049023-4 (Version None)
Quarter: 2012Q1

REPORT INFORMATION
  Report Type: 
  Country: None (occurrence: None)
  Receive Date: 20120117
  Receipt Date: 20120106
  Transmission Date: 20120608
  Serious: Yes (Other)
  Sender: FDA-Public Use
  Company Number: PHHY2012NL003364

PATIENT
  Sex: Male
  Weight: 2.74 kg

DRUGS (1)
  1. CLOMIPRAMINE HCL [Suspect]
     Dosage: MATERNAL DOSE: 125 MG INCLUSION IN STUDY AND 125 MG AT DELIVERY
     Route: 064

REACTIONS (2)
  - PREMATURE BABY [None]
  - FOETAL EXPOSURE DURING PREGNANCY [None]
